FAERS Safety Report 9527486 (Version 1)
Quarter: 2013Q3

REPORT INFORMATION
  Report Type: Spontaneous
  Country: JP (occurrence: JP)
  Receive Date: 20130917
  Receipt Date: 20130917
  Transmission Date: 20140515
  Serious: Yes (Other)
  Sender: FDA-Public Use
  Company Number: JP-BRISTOL-MYERS SQUIBB COMPANY-19393933

PATIENT
  Sex: 0

DRUGS (1)
  1. BYDUREON [Suspect]
     Route: 058

REACTIONS (1)
  - Enterocolitis [Unknown]
